FAERS Safety Report 11532968 (Version 1)
Quarter: 2015Q3

REPORT INFORMATION
  Report Type: Report from Study
  Country: US (occurrence: US)
  Receive Date: 20150921
  Receipt Date: 20150921
  Transmission Date: 20151125
  Serious: Yes (Hospitalization, Other)
  Sender: FDA-Public Use
  Company Number: US-JNJFOC-20150815839

PATIENT
  Age: 76 Year
  Sex: Male

DRUGS (22)
  1. FINASTERIDE. [Concomitant]
     Active Substance: FINASTERIDE
     Route: 048
  2. ASPIRIN. [Concomitant]
     Active Substance: ASPIRIN
     Route: 048
  3. FLONASE [Concomitant]
     Active Substance: FLUTICASONE PROPIONATE
  4. IMBRUVICA [Suspect]
     Active Substance: IBRUTINIB
     Indication: MANTLE CELL LYMPHOMA
     Route: 048
     Dates: start: 20140603
  5. IRON [Concomitant]
     Active Substance: IRON
     Route: 048
  6. URECHOLINE [Concomitant]
     Active Substance: BETHANECHOL CHLORIDE
     Route: 048
  7. AMOXIL [Concomitant]
     Active Substance: AMOXICILLIN
  8. SPIRIVA [Concomitant]
     Active Substance: TIOTROPIUM BROMIDE MONOHYDRATE
  9. MIRALAX [Concomitant]
     Active Substance: POLYETHYLENE GLYCOL 3350
     Route: 048
  10. METOPROLOL [Concomitant]
     Active Substance: METOPROLOL
  11. VITAMIN D3 [Concomitant]
     Active Substance: CHOLECALCIFEROL
  12. XALATAN [Concomitant]
     Active Substance: LATANOPROST
  13. REFRESH [Concomitant]
     Active Substance: UNSPECIFIED INGREDIENT
  14. TRAMADOL. [Concomitant]
     Active Substance: TRAMADOL
  15. FLOMAX [Concomitant]
     Active Substance: TAMSULOSIN HYDROCHLORIDE
     Route: 048
  16. NITROGLYCERIN. [Concomitant]
     Active Substance: NITROGLYCERIN
     Route: 060
  17. COLACE [Concomitant]
     Active Substance: DOCUSATE SODIUM
     Route: 048
  18. IMBRUVICA [Suspect]
     Active Substance: IBRUTINIB
     Indication: MANTLE CELL LYMPHOMA
     Route: 048
     Dates: start: 20150731
  19. ALBUTEROL. [Concomitant]
     Active Substance: ALBUTEROL
  20. PRILOSEC [Concomitant]
     Active Substance: OMEPRAZOLE MAGNESIUM
     Route: 048
  21. KEPPRA [Concomitant]
     Active Substance: LEVETIRACETAM
     Route: 048
  22. GABAPENTIN. [Concomitant]
     Active Substance: GABAPENTIN
     Route: 048

REACTIONS (12)
  - Encephalopathy [Recovering/Resolving]
  - Asthenia [Unknown]
  - Thrombocytopenia [Recovering/Resolving]
  - Neutropenic sepsis [Recovered/Resolved]
  - Neutropenia [Recovering/Resolving]
  - Coronary artery occlusion [Recovered/Resolved]
  - Upper respiratory tract infection [Recovered/Resolved]
  - Subdural haematoma [Recovered/Resolved]
  - Pneumonia [Unknown]
  - Atrial fibrillation [Recovered/Resolved]
  - Diarrhoea [Unknown]
  - Fatigue [Unknown]

NARRATIVE: CASE EVENT DATE: 201408
